FAERS Safety Report 19085590 (Version 3)
Quarter: 2021Q2

REPORT INFORMATION
  Report Type: Report from Study
  Country: US (occurrence: US)
  Receive Date: 20210401
  Receipt Date: 20210412
  Transmission Date: 20210717
  Serious: No
  Sender: FDA-Public Use
  Company Number: NVSC2021US074992

PATIENT
  Sex: Female

DRUGS (1)
  1. XIIDRA [Suspect]
     Active Substance: LIFITEGRAST
     Indication: EYE IRRITATION
     Dosage: UNK
     Route: 065

REACTIONS (3)
  - Eye injury [Unknown]
  - Eye pain [Unknown]
  - Eye irritation [Unknown]
